FAERS Safety Report 5999136-3 (Version None)
Quarter: 2008Q4

REPORT INFORMATION
  Report Type: 
  Country: None (occurrence: None)
  Receive Date: 20081211
  Receipt Date: 20081125
  Transmission Date: 20090506
  Serious: Yes (Hospitalization)
  Sender: FDA-Public Use
  Company Number: KV200800597

PATIENT
  Age: 65 Year
  Sex: Male
  Weight: 64.4 kg

DRUGS (6)
  1. PROPAFENONE HCL [Suspect]
     Indication: ARRHYTHMIA
     Dosage: 150MG, BID, ORAL
     Route: 048
     Dates: start: 20060101, end: 20080601
  2. COUMADIN [Concomitant]
  3. VYTORIN [Concomitant]
  4. ASPIRIN [Concomitant]
  5. ACTOS /01460202/ (PIOGLITAZONE HYDROCHLORIDE) [Concomitant]
  6. METOPROLOL TARTRATE [Concomitant]

REACTIONS (6)
  - ARRHYTHMIA [None]
  - BRADYCARDIA [None]
  - CONDITION AGGRAVATED [None]
  - ELECTROCARDIOGRAM ABNORMAL [None]
  - LOSS OF CONSCIOUSNESS [None]
  - PRODUCT QUALITY ISSUE [None]
